FAERS Safety Report 8333822-5 (Version None)
Quarter: 2012Q2

REPORT INFORMATION
  Report Type: 
  Country: None (occurrence: None)
  Receive Date: 20120503
  Receipt Date: 20120430
  Transmission Date: 20120825
  Serious: Yes (Death)
  Sender: FDA-Public Use
  Company Number: FR-SANOFI-AVENTIS-2012SA030142

PATIENT
  Age: 85 Year
  Sex: Female

DRUGS (15)
  1. ALDACTONE [Concomitant]
     Route: 048
     Dates: end: 20120223
  2. LASIX [Concomitant]
     Route: 048
     Dates: end: 20120223
  3. PREDNISOLONE [Suspect]
     Route: 048
     Dates: end: 20120221
  4. PLAVIX [Suspect]
     Indication: MYOCARDIAL INFARCTION
     Route: 048
     Dates: start: 20111101, end: 20120220
  5. OXAZEPAM [Concomitant]
     Route: 048
     Dates: end: 20120223
  6. DIGOXIN [Concomitant]
     Route: 048
     Dates: end: 20120223
  7. IMOVANE [Concomitant]
     Route: 048
     Dates: end: 20120223
  8. ACETAMINOPHEN [Concomitant]
     Route: 048
     Dates: end: 20120223
  9. ASPIRIN [Suspect]
     Indication: MYOCARDIAL INFARCTION
     Route: 048
     Dates: start: 20111101, end: 20120220
  10. CITALOPRAM HYDROBROMIDE [Concomitant]
     Route: 048
     Dates: end: 20120223
  11. ATORVASTATIN [Concomitant]
     Route: 048
     Dates: end: 20120223
  12. COUMADIN [Suspect]
     Route: 048
     Dates: start: 20111101, end: 20120220
  13. PERINDOPRIL ERBUMINE [Concomitant]
     Route: 048
     Dates: end: 20120223
  14. NEXIUM [Concomitant]
     Route: 048
     Dates: end: 20120223
  15. SECTRAL [Concomitant]
     Route: 048
     Dates: end: 20120223

REACTIONS (3)
  - GASTROINTESTINAL HAEMORRHAGE [None]
  - MELAENA [None]
  - INTERNATIONAL NORMALISED RATIO INCREASED [None]
